FAERS Safety Report 5904538-7 (Version None)
Quarter: 2008Q4

REPORT INFORMATION
  Report Type: 
  Country: None (occurrence: None)
  Receive Date: 20081001
  Receipt Date: 20080918
  Transmission Date: 20090506
  Serious: Yes (Other)
  Sender: FDA-Public Use
  Company Number: IL-NOVOPROD-279689

PATIENT
  Age: 53 Year
  Sex: Male

DRUGS (5)
  1. NOVONORM [Suspect]
     Indication: DRUG USE FOR UNKNOWN INDICATION
     Dosage: 1-3 MG, QD
     Dates: start: 20080905
  2. NOVONORM [Suspect]
  3. LEVEMIR [Suspect]
     Indication: DRUG USE FOR UNKNOWN INDICATION
     Dosage: 12 IU IN THE MORNING
     Dates: start: 20080905
  4. METFORMIN HCL [Concomitant]
  5. GLYBURIDE [Concomitant]

REACTIONS (3)
  - ABDOMINAL RIGIDITY [None]
  - CHEST PAIN [None]
  - DYSPNOEA [None]
